FAERS Safety Report 18559316 (Version 2)
Quarter: 2021Q1

REPORT INFORMATION
  Report Type: Spontaneous
  Country: NZ (occurrence: NZ)
  Receive Date: 20201130
  Receipt Date: 20210203
  Transmission Date: 20210419
  Serious: Yes (Other)
  Sender: FDA-Public Use
  Company Number: NZ-PFIZER INC-2020470020

PATIENT
  Age: 57 Year
  Sex: Male
  Weight: 80 kg

DRUGS (14)
  1. CELECOXIB. [Suspect]
     Active Substance: CELECOXIB
     Indication: ARTHRALGIA
     Dosage: 100 MG, 2X/DAY
     Route: 048
     Dates: start: 20201015, end: 20201016
  2. ATORVASTATIN [Concomitant]
     Active Substance: ATORVASTATIN
  3. CELECOXIB. [Suspect]
     Active Substance: CELECOXIB
     Indication: ARTHRITIS
     Dosage: 100 MG, DAILY
  4. TRAMADOL. [Concomitant]
     Active Substance: TRAMADOL
     Dosage: UNK
  5. NORTRIPTYLINE [Concomitant]
     Active Substance: NORTRIPTYLINE
  6. ZOSTRIX [CAPSAICIN] [Concomitant]
     Dosage: THREE TO FOUR TIMES DAILY ON AFFECTED AREAS,
  7. CITALOPRAM [Concomitant]
     Active Substance: CITALOPRAM HYDROBROMIDE
  8. COLECALCIFEROL [Concomitant]
     Active Substance: CHOLECALCIFEROL
  9. CLONAZEPAM. [Concomitant]
     Active Substance: CLONAZEPAM
     Dosage: UNK
  10. BENZATROPINE [Concomitant]
     Active Substance: BENZTROPINE
  11. RISPERDAL [Concomitant]
     Active Substance: RISPERIDONE
  12. CELECOXIB. [Suspect]
     Active Substance: CELECOXIB
     Indication: BACK PAIN
  13. ZOPICLONE [Concomitant]
     Active Substance: ZOPICLONE
  14. FOLIC ACID. [Concomitant]
     Active Substance: FOLIC ACID

REACTIONS (4)
  - Hallucination, visual [Unknown]
  - Psychotic disorder [Recovered/Resolved]
  - Weight decreased [Not Recovered/Not Resolved]
  - Hallucination, auditory [Recovered/Resolved]
